FAERS Safety Report 7918122-7 (Version None)
Quarter: 2011Q4

REPORT INFORMATION
  Report Type: 
  Country: None (occurrence: None)
  Receive Date: 20111116
  Receipt Date: 20110811
  Transmission Date: 20120403
  Serious: No
  Sender: FDA-Public Use
  Company Number: US-BAYER-2011-075516

PATIENT
  Age: 47 Year
  Sex: Female

DRUGS (3)
  1. ANTIHYPERTENSIVES [Concomitant]
  2. ALEVE (CAPLET) [Suspect]
     Route: 048
  3. ZOLOFT [Concomitant]

REACTIONS (1)
  - NO ADVERSE EVENT [None]
